FAERS Safety Report 18340219 (Version 1)
Quarter: 2020Q4

REPORT INFORMATION
  Report Type: Spontaneous
  Country: CN (occurrence: CN)
  Receive Date: 20201002
  Receipt Date: 20201002
  Transmission Date: 20210113
  Serious: Yes (Other)
  Sender: FDA-Public Use
  Company Number: CN-BAYER-2020-211362

PATIENT
  Age: 47 Year
  Sex: Male
  Weight: 58 kg

DRUGS (1)
  1. STIVARGA [Suspect]
     Active Substance: REGORAFENIB
     Indication: NEOPLASM
     Dosage: 160 MG, QD
     Route: 048
     Dates: start: 20200714, end: 20200928

REACTIONS (7)
  - Erythema [Recovering/Resolving]
  - Gamma-glutamyltransferase increased [None]
  - Aspartate aminotransferase increased [None]
  - Arthralgia [Recovering/Resolving]
  - Alanine aminotransferase increased [None]
  - Skin exfoliation [Recovering/Resolving]
  - Osteoarthritis [Recovering/Resolving]

NARRATIVE: CASE EVENT DATE: 20200811
